FAERS Safety Report 17565966 (Version 1)
Quarter: 2020Q1

REPORT INFORMATION
  Report Type: Spontaneous
  Country: US (occurrence: US)
  Receive Date: 20200314
  Receipt Date: 20200314
  Transmission Date: 20200409
  Serious: Yes (Hospitalization)
  Sender: FDA-Public Use
  Company Number: None

PATIENT
  Age: 73 Year
  Sex: Female
  Weight: 53.6 kg

DRUGS (3)
  1. 5-FLUOROURACIL (5-FU) [Suspect]
     Active Substance: FLUOROURACIL
     Dates: end: 20200224
  2. LEUCOVORIN CALCIUM. [Suspect]
     Active Substance: LEUCOVORIN CALCIUM
     Dates: end: 20200224
  3. ELOXATIN [Suspect]
     Active Substance: OXALIPLATIN
     Dates: end: 20200224

REACTIONS (4)
  - Vomiting [None]
  - Colonic abscess [None]
  - Nausea [None]
  - Condition aggravated [None]

NARRATIVE: CASE EVENT DATE: 20200228
